FAERS Safety Report 8395853-9 (Version None)
Quarter: 2012Q2

REPORT INFORMATION
  Report Type: 
  Country: None (occurrence: None)
  Receive Date: 20120529
  Receipt Date: 20120529
  Transmission Date: 20120825
  Serious: No
  Sender: FDA-Public Use
  Company Number: None

PATIENT
  Sex: Male
  Weight: 90.7194 kg

DRUGS (1)
  1. CLINDAMYCIN [Suspect]
     Indication: APPENDICITIS PERFORATED
     Dosage: 300 MG 4 X DAILY PO
     Route: 048
     Dates: start: 20120130, end: 20120205

REACTIONS (3)
  - DIARRHOEA [None]
  - DYSPEPSIA [None]
  - DISBACTERIOSIS [None]
